FAERS Safety Report 8238445-4 (Version None)
Quarter: 2012Q1

REPORT INFORMATION
  Report Type: 
  Country: None (occurrence: None)
  Receive Date: 20120327
  Receipt Date: 20120312
  Transmission Date: 20120608
  Serious: Yes (Life-Threatening, Disabling, Other)
  Sender: FDA-Public Use
  Company Number: US-ROCHE-759928

PATIENT
  Sex: Male

DRUGS (5)
  1. MYCOPHENOLATE MOFETIL (CELLCEPT) [Suspect]
     Indication: PROPHYLAXIS AGAINST TRANSPLANT REJECTION
     Route: 048
  2. BELATACEPT [Suspect]
     Indication: PROPHYLAXIS AGAINST TRANSPLANT REJECTION
     Route: 042
     Dates: start: 20020502, end: 20101206
  3. PEPCID [Concomitant]
  4. PREDNISONE TAB [Suspect]
     Indication: PROPHYLAXIS AGAINST TRANSPLANT REJECTION
     Route: 065
  5. LABETALOL HCL [Concomitant]

REACTIONS (7)
  - RESPIRATORY FAILURE [None]
  - QUADRIPLEGIA [None]
  - SINUS BRADYCARDIA [None]
  - PNEUMONIA [None]
  - CARDIAC ARREST [None]
  - CERVICAL VERTEBRAL FRACTURE [None]
  - PARALYSIS [None]
